FAERS Safety Report 14728708 (Version 2)
Quarter: 2018Q2

REPORT INFORMATION
  Report Type: Spontaneous
  Country: BR (occurrence: BR)
  Receive Date: 20180406
  Receipt Date: 20180416
  Transmission Date: 20180711
  Serious: Yes (Life-Threatening)
  Sender: FDA-Public Use
  Company Number: BR-SA-2018SA090530

PATIENT
  Sex: Female
  Weight: 55 kg

DRUGS (7)
  1. ARAVA [Suspect]
     Active Substance: LEFLUNOMIDE
     Indication: RHEUMATOID ARTHRITIS
     Route: 048
     Dates: start: 201712, end: 20180314
  2. METREXATO [Concomitant]
     Active Substance: METHOTREXATE SODIUM
     Indication: RHEUMATOID ARTHRITIS
     Route: 048
  3. LOSARTAN. [Concomitant]
     Active Substance: LOSARTAN
     Indication: HYPERTENSION
     Route: 048
  4. PREDNISONE. [Concomitant]
     Active Substance: PREDNISONE
     Indication: RHEUMATOID ARTHRITIS
     Route: 048
  5. ALENDRONATE [Concomitant]
     Active Substance: ALENDRONATE SODIUM
     Route: 048
  6. FOLIC ACID. [Concomitant]
     Active Substance: FOLIC ACID
     Indication: RHEUMATOID ARTHRITIS
     Route: 048
  7. CALCIUM [Concomitant]
     Active Substance: CALCIUM
     Indication: MINERAL SUPPLEMENTATION
     Route: 048

REACTIONS (24)
  - Pruritus [Recovering/Resolving]
  - Blood potassium abnormal [Unknown]
  - Aspartate aminotransferase increased [Unknown]
  - Liver disorder [Recovering/Resolving]
  - Chromaturia [Recovering/Resolving]
  - Urobilinogen urine [Unknown]
  - Choluria [Unknown]
  - Red blood cells urine [Unknown]
  - Abdominal pain [Recovering/Resolving]
  - Platelet disorder [Unknown]
  - Urinary sediment present [Unknown]
  - Varicella [Unknown]
  - Bilirubin conjugated increased [Unknown]
  - Blood creatinine increased [Unknown]
  - Blood alkaline phosphatase increased [Unknown]
  - Red cell distribution width increased [Unknown]
  - Decreased appetite [Recovering/Resolving]
  - Lymphocyte count decreased [Unknown]
  - Gamma-glutamyltransferase increased [Unknown]
  - Proteinuria [Unknown]
  - Jaundice [Recovering/Resolving]
  - Vomiting [Recovering/Resolving]
  - Blood bilirubin unconjugated increased [Unknown]
  - Blood bilirubin increased [Unknown]
